FAERS Safety Report 4582880-2 (Version None)
Quarter: 2005Q1

REPORT INFORMATION
  Report Type: 
  Country: None (occurrence: None)
  Receive Date: 20050127
  Receipt Date: 20040913
  Transmission Date: 20050727
  Serious: No
  Sender: FDA-Public Use
  Company Number: USA040978116

PATIENT
  Age: 9 Year
  Sex: Female

DRUGS (5)
  1. STRATTERA [Suspect]
     Indication: ANXIETY
     Dosage: 25 MG DAY
     Dates: start: 20040701
  2. STRATTERA [Suspect]
     Indication: ATTENTION DEFICIT/HYPERACTIVITY DISORDER
     Dosage: 25 MG DAY
     Dates: start: 20040701
  3. CELEXA [Concomitant]
  4. CLONIDINE [Concomitant]
  5. CONCERTA [Concomitant]

REACTIONS (1)
  - ANXIETY [None]
